FAERS Safety Report 8016539-6 (Version None)
Quarter: 2011Q4

REPORT INFORMATION
  Report Type: 
  Country: None (occurrence: None)
  Receive Date: 20111230
  Receipt Date: 20111222
  Transmission Date: 20120403
  Serious: Yes (Disabling)
  Sender: FDA-Public Use
  Company Number: DE-MERCK-1111DEU00002

PATIENT
  Age: 46 Year
  Sex: Female

DRUGS (3)
  1. FEXOFENADINE HYDROCHLORIDE [Concomitant]
     Route: 048
  2. OMALIZUMAB [Concomitant]
     Route: 065
  3. SINGULAIR [Suspect]
     Indication: RESPIRATORY DISORDER
     Route: 048
     Dates: start: 20110101, end: 20111001

REACTIONS (2)
  - IDIOPATHIC THROMBOCYTOPENIC PURPURA [None]
  - THROMBOCYTOPENIA [None]
